FAERS Safety Report 24966127 (Version 1)
Quarter: 2025Q1

REPORT INFORMATION
  Report Type: Report from Study
  Country: BR (occurrence: BR)
  Receive Date: 20250213
  Receipt Date: 20250213
  Transmission Date: 20250408
  Serious: Yes (Other)
  Sender: AMGEN
  Company Number: BR-AMGEN-BRASL2022214749

PATIENT
  Age: 62 Year
  Sex: Male

DRUGS (13)
  1. VECTIBIX [Suspect]
     Active Substance: PANITUMUMAB
     Indication: Colorectal cancer metastatic
     Dosage: UNK UNK, Q2WK (EVERY 15 DAYS)
     Route: 040
     Dates: start: 20221101
  2. VECTIBIX [Suspect]
     Active Substance: PANITUMUMAB
     Dosage: UNK UNK, Q2WK (EVERY 15 DAYS)
     Route: 040
     Dates: start: 202301, end: 2023
  3. VECTIBIX [Suspect]
     Active Substance: PANITUMUMAB
     Route: 040
     Dates: start: 20250123
  4. GLICERINA [Concomitant]
     Route: 065
  5. LOSARTAN [Concomitant]
     Active Substance: LOSARTAN
     Indication: Hypertension
     Route: 065
  6. LOSARTAN [Concomitant]
     Active Substance: LOSARTAN
     Route: 065
  7. AMOXICILLIN [Concomitant]
     Active Substance: AMOXICILLIN
     Route: 065
  8. PREDNISONE [Concomitant]
     Active Substance: PREDNISONE
  9. METAMIZOLE [Concomitant]
     Active Substance: METAMIZOLE
     Indication: Product used for unknown indication
     Dosage: UNK UNK, Q12H, 12/12 HOURS
  10. DICLORIDRATO DE LEVOCETIRIZINA [Concomitant]
     Indication: Product used for unknown indication
     Dosage: 5 MILLILITER, Q12H, 12/12 HOURS
  11. COSMETICS [Concomitant]
     Active Substance: COSMETICS
     Indication: Product used for unknown indication
  12. BETAMETHASONE DIPROPIONATE\GENTAMICIN SULFATE [Concomitant]
     Active Substance: BETAMETHASONE DIPROPIONATE\GENTAMICIN SULFATE
     Indication: Product used for unknown indication
  13. CICAPLAST [Concomitant]
     Route: 065

REACTIONS (25)
  - Colorectal cancer metastatic [Not Recovered/Not Resolved]
  - Thrombosis [Not Recovered/Not Resolved]
  - Contusion [Recovering/Resolving]
  - Sensitive skin [Not Recovered/Not Resolved]
  - Skin wound [Not Recovered/Not Resolved]
  - Burning sensation [Not Recovered/Not Resolved]
  - Dermatitis allergic [Not Recovered/Not Resolved]
  - Skin irritation [Not Recovered/Not Resolved]
  - Asthenia [Recovering/Resolving]
  - Dry skin [Recovering/Resolving]
  - Decreased appetite [Recovering/Resolving]
  - Erythema [Not Recovered/Not Resolved]
  - Dry eye [Recovering/Resolving]
  - Skin ulcer [Not Recovered/Not Resolved]
  - Nausea [Not Recovered/Not Resolved]
  - Acne [Not Recovered/Not Resolved]
  - Pruritus [Not Recovered/Not Resolved]
  - Hiccups [Recovering/Resolving]
  - Wound haemorrhage [Recovering/Resolving]
  - Gastrointestinal disorder [Recovering/Resolving]
  - Dry throat [Not Recovered/Not Resolved]
  - Eyelid pain [Not Recovered/Not Resolved]
  - Eye discharge [Recovering/Resolving]
  - Skin haemorrhage [Not Recovered/Not Resolved]
  - Insomnia [Recovering/Resolving]

NARRATIVE: CASE EVENT DATE: 20220101
